FAERS Safety Report 20409094 (Version 2)
Quarter: 2022Q2

REPORT INFORMATION
  Report Type: Spontaneous
  Country: US (occurrence: US)
  Receive Date: 20220201
  Receipt Date: 20220419
  Transmission Date: 20220721
  Serious: No
  Sender: FDA-Public Use
  Company Number: US-GLENMARK PHARMACEUTICALS-2021GMK069365

PATIENT

DRUGS (2)
  1. TACROLIMUS [Suspect]
     Active Substance: TACROLIMUS
     Indication: Eyelids pruritus
     Dosage: UNK, BID (APPLY THIN LAYER ON THE AFFECTED EYELIDS 2X A DAY)
     Route: 061
  2. TACROLIMUS [Suspect]
     Active Substance: TACROLIMUS
     Indication: Erythema of eyelid

REACTIONS (2)
  - Eyelid irritation [Unknown]
  - Product use issue [Unknown]
